FAERS Safety Report 17679369 (Version 1)
Quarter: 2020Q2

REPORT INFORMATION
  Report Type: Spontaneous
  Country: US (occurrence: US)
  Receive Date: 20200416
  Receipt Date: 20200416
  Transmission Date: 20200714
  Serious: Yes (Life-Threatening, Other)
  Sender: FDA-Public Use
  Company Number: None

PATIENT
  Age: 77 Year
  Sex: Male
  Weight: 104 kg

DRUGS (1)
  1. TRULICITY [Suspect]
     Active Substance: DULAGLUTIDE
     Indication: TYPE 2 DIABETES MELLITUS
     Route: 058
     Dates: start: 20190915, end: 20200315

REACTIONS (4)
  - Pancreatitis chronic [None]
  - Pancreatic haemorrhage [None]
  - Bowel movement irregularity [None]
  - Faeces discoloured [None]

NARRATIVE: CASE EVENT DATE: 20200225
